FAERS Safety Report 25658696 (Version 2)
Quarter: 2025Q4

REPORT INFORMATION
  Report Type: Spontaneous
  Country: US (occurrence: US)
  Receive Date: 20250808
  Receipt Date: 20251006
  Transmission Date: 20260118
  Serious: No
  Sender: CIPLA
  Company Number: US-CIPLA LTD.-2025US09684

PATIENT

DRUGS (3)
  1. ALBUTEROL [Suspect]
     Active Substance: ALBUTEROL
     Indication: Chronic obstructive pulmonary disease
     Dosage: UNK, ONCE OR TWICE A WEEK
     Dates: start: 202507
  2. ALBUTEROL [Suspect]
     Active Substance: ALBUTEROL
     Indication: Emphysema
     Dosage: UNK, ONCE OR TWICE A WEEK
     Dates: start: 202507
  3. ALBUTEROL [Suspect]
     Active Substance: ALBUTEROL
     Dosage: UNK, ONCE OR TWICE A WEEK
     Dates: start: 202507

REACTIONS (5)
  - Drug dose omission by device [Unknown]
  - Product packaging quantity issue [Unknown]
  - Device delivery system issue [Unknown]
  - Device mechanical issue [Unknown]
  - Off label use [Unknown]

NARRATIVE: CASE EVENT DATE: 20250701
